FAERS Safety Report 23062437 (Version 1)
Quarter: 2023Q4

REPORT INFORMATION
  Report Type: Spontaneous
  Country: US (occurrence: US)
  Receive Date: 20231013
  Receipt Date: 20231013
  Transmission Date: 20240110
  Serious: No
  Sender: FDA-Public Use
  Company Number: US-PFIZER INC-202300325141

PATIENT
  Age: 56 Year
  Sex: Female

DRUGS (7)
  1. IBRANCE [Suspect]
     Active Substance: PALBOCICLIB
     Dosage: 75MG TABLET TAKE 1 TABLET BY MOUTH DAILY ON DAYS 1 THROUGH 21 EVERY 28 DAYS
     Route: 048
     Dates: start: 20190401
  2. LETROZOLE [Concomitant]
     Active Substance: LETROZOLE
  3. IBUPROFEN [Concomitant]
     Active Substance: IBUPROFEN
  4. CALCIUM +D [CALCIUM CARBONATE;COLECALCIFEROL] [Concomitant]
  5. TYLENOL EXTRA STRENGTH [Concomitant]
     Active Substance: ACETAMINOPHEN
  6. MAGNESIUM [Concomitant]
     Active Substance: MAGNESIUM
  7. BIOTIN [Concomitant]
     Active Substance: BIOTIN

REACTIONS (1)
  - Migraine [Unknown]
